FAERS Safety Report 6095924-6 (Version None)
Quarter: 2009Q1

REPORT INFORMATION
  Report Type: 
  Country: None (occurrence: None)
  Receive Date: 20090227
  Receipt Date: 20080716
  Transmission Date: 20090719
  Serious: No
  Sender: FDA-Public Use
  Company Number: A0737982A

PATIENT
  Age: 28 Year
  Sex: Male

DRUGS (2)
  1. LAMICTAL [Suspect]
     Indication: EPILEPSY
     Dosage: 550MG UNKNOWN
     Route: 048
     Dates: start: 20010101
  2. DEPAKOTE [Concomitant]

REACTIONS (3)
  - ANTICONVULSANT DRUG LEVEL DECREASED [None]
  - OSTEOPOROSIS [None]
  - SOMNOLENCE [None]
